FAERS Safety Report 4742891-0 (Version None)
Quarter: 2005Q3

REPORT INFORMATION
  Report Type: 
  Country: None (occurrence: None)
  Receive Date: 20050811
  Receipt Date: 20050804
  Transmission Date: 20060218
  Serious: Yes (Hospitalization)
  Sender: FDA-Public Use
  Company Number: PHNU2005DE02784

PATIENT
  Age: 67 Year
  Sex: Male

DRUGS (5)
  1. CLOZARIL [Suspect]
     Indication: DELUSIONAL DISORDER, UNSPECIFIED TYPE
     Dosage: UP TO 175 MG, QD
     Route: 048
     Dates: start: 20050722
  2. CAPTOHEXAL [Concomitant]
     Indication: HYPERTENSION
     Route: 048
  3. REBOXETINE [Concomitant]
     Route: 048
  4. OMNIC [Concomitant]
     Route: 048
  5. MIRTAZAPINE [Concomitant]
     Dosage: 40 MG, QD
     Route: 065

REACTIONS (4)
  - ACUTE PULMONARY OEDEMA [None]
  - DYSPNOEA [None]
  - LEFT VENTRICULAR FAILURE [None]
  - LEUKOCYTOSIS [None]
